FAERS Safety Report 9035114 (Version 1)
Quarter: 2013Q1

REPORT INFORMATION
  Report Type: Report from Study
  Country: US (occurrence: US)
  Receive Date: 20130129
  Receipt Date: 20130129
  Transmission Date: 20140127
  Serious: No
  Sender: FDA-Public Use
  Company Number: US-ABBOTT-12P-163-0899400-00

PATIENT
  Age: 20 None
  Sex: Female
  Weight: 81.72 kg

DRUGS (3)
  1. HUMIRA 40 MG/0.8 ML PEN [Suspect]
     Indication: CROHN^S DISEASE
     Dates: start: 201103
  2. MULTIVITAMIN [Concomitant]
     Indication: SUPPLEMENTATION THERAPY
  3. IRON [Concomitant]
     Indication: SUPPLEMENTATION THERAPY

REACTIONS (6)
  - Injection site haemorrhage [Recovered/Resolved]
  - Injection site urticaria [Recovered/Resolved]
  - Incorrect dose administered [Unknown]
  - Injection site haemorrhage [Recovered/Resolved]
  - Anxiety [Not Recovered/Not Resolved]
  - Injection site pain [Not Recovered/Not Resolved]
